FAERS Safety Report 19125299 (Version 4)
Quarter: 2021Q2

REPORT INFORMATION
  Report Type: Spontaneous
  Country: US (occurrence: US)
  Receive Date: 20210413
  Receipt Date: 20210426
  Transmission Date: 20210717
  Serious: Yes (Other)
  Sender: FDA-Public Use
  Company Number: US-KARYOPHARM-2021KPT000485

PATIENT

DRUGS (3)
  1. DEXAMETHASONE. [Concomitant]
     Active Substance: DEXAMETHASONE
     Indication: PRODUCT USED FOR UNKNOWN INDICATION
  2. ONDANSETRON [Concomitant]
     Active Substance: ONDANSETRON
     Indication: PROPHYLAXIS OF NAUSEA AND VOMITING
  3. XPOVIO [Suspect]
     Active Substance: SELINEXOR
     Indication: PLASMA CELL MYELOMA
     Dosage: 80 MG, 2X/WEEK
     Route: 048
     Dates: start: 20210329, end: 2021

REACTIONS (13)
  - Blood creatinine increased [Unknown]
  - Cardiac dysfunction [Unknown]
  - Decreased appetite [Unknown]
  - Cognitive disorder [Unknown]
  - Constipation [Unknown]
  - Dyspnoea [Unknown]
  - International normalised ratio increased [Unknown]
  - Diarrhoea [Unknown]
  - Weight increased [Unknown]
  - Rash [Unknown]
  - Visual impairment [Unknown]
  - Abdominal distension [Unknown]
  - Confusional state [Unknown]

NARRATIVE: CASE EVENT DATE: 202103
